FAERS Safety Report 4748157-7 (Version None)
Quarter: 2005Q3

REPORT INFORMATION
  Report Type: 
  Country: None (occurrence: None)
  Receive Date: 20050818
  Receipt Date: 20050812
  Transmission Date: 20060218
  Serious: Yes (Other)
  Sender: FDA-Public Use
  Company Number: 200516204US

PATIENT
  Age: 50 Year
  Sex: 0

DRUGS (4)
  1. LANTUS [Suspect]
     Indication: DIABETES MELLITUS INSULIN-DEPENDENT
     Dosage: DOSE UNIT: UNITS
     Route: 051
  2. PSYCHIATRIC [Concomitant]
     Dosage: DOSE: UNKNOWN
  3. HUMULIN 70/30 [Concomitant]
     Dosage: DOSE: UNKNOWN
  4. HUMALOG [Concomitant]
     Dosage: DOSE: UNKNOWN; FREQUENCY: BEFORE MEALS

REACTIONS (4)
  - DEPRESSION [None]
  - FIBROMYALGIA [None]
  - STRESS [None]
  - WEIGHT LOSS POOR [None]
